FAERS Safety Report 8979641 (Version 1)
Quarter: 2012Q4

REPORT INFORMATION
  Report Type: 
  Country: US (occurrence: US)
  Receive Date: 20121221
  Receipt Date: 20121221
  Transmission Date: 20130627
  Serious: No
  Sender: FDA-Public Use
  Company Number: US-BAYER-2012-126740

PATIENT

DRUGS (2)
  1. ALEVE CAPLET/TABLET,MIDOL EXTENDED RELIEF CAPLET [Suspect]
     Indication: MENSTRUAL CRAMP
  2. BUPRENORPHINE [Concomitant]

REACTIONS (9)
  - Chest discomfort [None]
  - Limb discomfort [None]
  - Abdominal discomfort [None]
  - Insomnia [None]
  - Fatigue [None]
  - Pain [None]
  - Drug ineffective [None]
  - Back pain [None]
  - Arthralgia [None]
